FAERS Safety Report 19271787 (Version 1)
Quarter: 2021Q2

REPORT INFORMATION
  Report Type: Spontaneous
  Country: FR (occurrence: FR)
  Receive Date: 20210519
  Receipt Date: 20210519
  Transmission Date: 20210717
  Serious: Yes (Death, Other)
  Sender: FDA-Public Use
  Company Number: FR-AUROBINDO-AUR-APL-2021-019883

PATIENT
  Sex: Female

DRUGS (8)
  1. MELPHALAN. [Suspect]
     Active Substance: MELPHALAN
     Indication: FOLLICULAR LYMPHOMA
     Dosage: 140 MILLIGRAM/SQ. METER
     Route: 042
     Dates: start: 20200113, end: 20200113
  2. ONDANSETRON [Concomitant]
     Active Substance: ONDANSETRON
     Indication: PRODUCT USED FOR UNKNOWN INDICATION
     Dosage: 8 MILLIGRAM, TWO TIMES A DAY
     Route: 048
  3. CARMUSTINE. [Suspect]
     Active Substance: CARMUSTINE
     Indication: FOLLICULAR LYMPHOMA
     Dosage: 300 MILLIGRAM/SQ. METER
     Route: 042
     Dates: start: 20200108, end: 20200108
  4. METOCLOPRAMIDE HYDROCHLORIDE. [Concomitant]
     Active Substance: METOCLOPRAMIDE HYDROCHLORIDE
     Indication: PRODUCT USED FOR UNKNOWN INDICATION
     Dosage: UNK
     Route: 048
  5. CYTARABINE. [Suspect]
     Active Substance: CYTARABINE
     Indication: FOLLICULAR LYMPHOMA
     Dosage: 200 MILLIGRAM/SQ. METER, TWO TIMES A DAY
     Route: 042
     Dates: start: 20200109, end: 20200112
  6. ETOPOSIDE. [Suspect]
     Active Substance: ETOPOSIDE
     Indication: FOLLICULAR LYMPHOMA
     Dosage: 200 MILLIGRAM/SQ. METER, TWO TIMES A DAY
     Route: 042
     Dates: start: 20200109, end: 20200112
  7. TRAMADOL HYDROCHLORIDE. [Concomitant]
     Active Substance: TRAMADOL HYDROCHLORIDE
     Indication: PRODUCT USED FOR UNKNOWN INDICATION
     Dosage: UNK
     Route: 048
  8. PANTOPRAZOLE [Concomitant]
     Active Substance: PANTOPRAZOLE
     Indication: PRODUCT USED FOR UNKNOWN INDICATION
     Dosage: 20 MILLIGRAM, ONCE A DAY
     Route: 048

REACTIONS (2)
  - Febrile bone marrow aplasia [Fatal]
  - Pneumonia respiratory syncytial viral [Fatal]

NARRATIVE: CASE EVENT DATE: 20200117
